FAERS Safety Report 14459642 (Version 2)
Quarter: 2018Q2

REPORT INFORMATION
  Report Type: Report from Study
  Country: US (occurrence: US)
  Receive Date: 20180130
  Receipt Date: 20180501
  Transmission Date: 20180711
  Serious: Yes (Hospitalization)
  Sender: FDA-Public Use
  Company Number: PHEH2018US003200

PATIENT
  Sex: Male

DRUGS (1)
  1. ENTRESTO [Suspect]
     Active Substance: SACUBITRIL\VALSARTAN
     Indication: PRODUCT USED FOR UNKNOWN INDICATION
     Dosage: 2 DF, QD
     Route: 048

REACTIONS (8)
  - Lip swelling [Not Recovered/Not Resolved]
  - Furuncle [Unknown]
  - Diabetes mellitus [Not Recovered/Not Resolved]
  - Acne [Not Recovered/Not Resolved]
  - Mouth swelling [Not Recovered/Not Resolved]
  - Hypotension [Unknown]
  - Drug hypersensitivity [Not Recovered/Not Resolved]
  - Nasal discomfort [Not Recovered/Not Resolved]
